FAERS Safety Report 5314092-9 (Version None)
Quarter: 2007Q2

REPORT INFORMATION
  Report Type: 
  Country: None (occurrence: None)
  Receive Date: 20070501
  Receipt Date: 20070419
  Transmission Date: 20071010
  Serious: Yes (Other)
  Sender: FDA-Public Use
  Company Number: US-PFIZER INC-2007032341

PATIENT
  Sex: Female
  Weight: 77.1 kg

DRUGS (2)
  1. LYRICA [Suspect]
     Indication: HERPES ZOSTER
     Dates: start: 20070301
  2. VALTREX [Concomitant]

REACTIONS (3)
  - ADNEXA UTERI PAIN [None]
  - AMENORRHOEA [None]
  - HERPES ZOSTER [None]
